FAERS Safety Report 11771273 (Version 2)
Quarter: 2015Q4

REPORT INFORMATION
  Report Type: Spontaneous
  Country: US (occurrence: US)
  Receive Date: 20151124
  Receipt Date: 20151211
  Transmission Date: 20160304
  Serious: No
  Sender: FDA-Public Use
  Company Number: US-TEVA-611655ACC

PATIENT
  Age: 46 Year
  Sex: Female
  Weight: 113.5 kg

DRUGS (1)
  1. PLAN B ONE-STEP [Suspect]
     Active Substance: LEVONORGESTREL
     Indication: POST COITAL CONTRACEPTION
     Dates: start: 20151112, end: 20151112

REACTIONS (2)
  - Polymenorrhoea [Recovered/Resolved]
  - Hypomenorrhoea [Recovered/Resolved]

NARRATIVE: CASE EVENT DATE: 20151117
